FAERS Safety Report 25453142 (Version 2)
Quarter: 2025Q2

REPORT INFORMATION
  Report Type: Spontaneous
  Country: CN (occurrence: CN)
  Receive Date: 20250618
  Receipt Date: 20250623
  Transmission Date: 20250717
  Serious: Yes (Hospitalization, Other)
  Sender: Hugel Aesthetics
  Company Number: CN-Hugel Aesthetics-2178995

PATIENT
  Age: 32 Year
  Sex: Female
  Weight: 55 kg

DRUGS (1)
  1. LETYBO [Suspect]
     Active Substance: LETIBOTULINUMTOXINA-WLBG
     Indication: Skin wrinkling
     Dates: start: 20250424

REACTIONS (6)
  - Diplopia [Recovered/Resolved]
  - Gait disturbance [Recovering/Resolving]
  - Cough [Recovering/Resolving]
  - Eyelid ptosis [Recovering/Resolving]
  - Dysphagia [Recovering/Resolving]
  - Muscular weakness [Recovering/Resolving]

NARRATIVE: CASE EVENT DATE: 20250424
